FAERS Safety Report 26188407 (Version 1)
Quarter: 2025Q4

REPORT INFORMATION
  Report Type: Spontaneous
  Country: BR (occurrence: BR)
  Receive Date: 20251222
  Receipt Date: 20251222
  Transmission Date: 20260117
  Serious: Yes (Other)
  Sender: NOVO NORDISK
  Company Number: BR-NOVOPROD-1582888

PATIENT
  Age: 49 Year
  Sex: Male

DRUGS (1)
  1. RYBELSUS [Suspect]
     Active Substance: SEMAGLUTIDE
     Indication: Diabetes mellitus
     Dosage: 14 MG, QD

REACTIONS (6)
  - Diabetes mellitus [Unknown]
  - Malaise [Unknown]
  - Illness [Unknown]
  - Asthenia [Unknown]
  - Abdominal pain upper [Unknown]
  - Drug ineffective [Unknown]
